FAERS Safety Report 4377383-4 (Version None)
Quarter: 2004Q2

REPORT INFORMATION
  Report Type: 
  Country: None (occurrence: None)
  Receive Date: 20040609
  Receipt Date: 20040507
  Transmission Date: 20050107
  Serious: No
  Sender: FDA-Public Use
  Company Number: 2004212814US

PATIENT
  Sex: Female

DRUGS (1)
  1. BEXTRA [Suspect]
     Indication: ARTHRITIS
     Dosage: 10 MG, QD, UNK
     Dates: start: 20040401

REACTIONS (1)
  - ACTIVATED PARTIAL THROMBOPLASTIN TIME PROLONGED [None]
